FAERS Safety Report 5137178-0 (Version None)
Quarter: 2006Q4

REPORT INFORMATION
  Report Type: 
  Country: None (occurrence: None)
  Receive Date: 20061030
  Receipt Date: 20050906
  Transmission Date: 20070319
  Serious: No
  Sender: FDA-Public Use
  Company Number: US-GLAXOSMITHKLINE-A0573390A

PATIENT
  Sex: Female

DRUGS (3)
  1. ADVAIR HFA [Suspect]
     Indication: CHRONIC OBSTRUCTIVE PULMONARY DISEASE
     Dosage: 1PUFF TWICE PER DAY
     Route: 055
  2. WELLBUTRIN [Concomitant]
     Route: 048
  3. UNKNOWN BLOOD PRESSURE MEDICATION [Concomitant]
     Route: 065

REACTIONS (2)
  - PHARYNGOLARYNGEAL PAIN [None]
  - WEIGHT INCREASED [None]
